FAERS Safety Report 9012779 (Version 1)
Quarter: 2013Q1

REPORT INFORMATION
  Report Type: Spontaneous
  Country: FR (occurrence: FR)
  Receive Date: 20130114
  Receipt Date: 20130114
  Transmission Date: 20140127
  Serious: Yes (Life-Threatening)
  Sender: FDA-Public Use
  Company Number: FR-ROCHE-1176873

PATIENT
  Sex: Female

DRUGS (5)
  1. MABTHERA [Suspect]
     Indication: B-CELL LYMPHOMA
     Dosage: 375 MG/M2 OF BODY SURFACE
     Route: 042
     Dates: start: 201004
  2. MABTHERA [Suspect]
     Route: 042
     Dates: end: 201202
  3. CYCLOPHOSPHAMID [Concomitant]
     Indication: B-CELL LYMPHOMA
  4. VINCRISTIN [Concomitant]
     Indication: B-CELL LYMPHOMA
  5. PREDNISONE [Concomitant]
     Indication: B-CELL LYMPHOMA

REACTIONS (1)
  - Progressive multifocal leukoencephalopathy [Not Recovered/Not Resolved]
